FAERS Safety Report 7269396-X (Version None)
Quarter: 2011Q1

REPORT INFORMATION
  Report Type: 
  Country: None (occurrence: None)
  Receive Date: 20110202
  Receipt Date: 20110127
  Transmission Date: 20110831
  Serious: Yes (Hospitalization)
  Sender: FDA-Public Use
  Company Number: US-BRISTOL-MYERS SQUIBB COMPANY-15520539

PATIENT
  Age: 65 Year
  Sex: Male

DRUGS (1)
  1. AMPHOTERICIN B FOR INJECTION [Suspect]
     Indication: ENDOPHTHALMITIS
     Dosage: 1DF=160 MCG/0.1 ML (INTRAVITREAL INJ)
     Route: 031

REACTIONS (2)
  - PANOPHTHALMITIS [None]
  - INCORRECT DOSE ADMINISTERED [None]
